FAERS Safety Report 6248128-8 (Version None)
Quarter: 2009Q2

REPORT INFORMATION
  Report Type: 
  Country: None (occurrence: None)
  Receive Date: 20090624
  Receipt Date: 20090624
  Transmission Date: 20091009
  Serious: No
  Sender: FDA-Public Use
  Company Number: None

PATIENT
  Age: 71 Year
  Sex: Male
  Weight: 93.441 kg

DRUGS (4)
  1. BENDAMUSTINE CEPHALON [Suspect]
     Indication: MANTLE CELL LYMPHOMA
     Dosage: 193 X'S 2 IV
     Route: 042
     Dates: start: 20090513
  2. BENDAMUSTINE CEPHALON [Suspect]
     Indication: MANTLE CELL LYMPHOMA
     Dosage: 193 X'S 2 IV
     Route: 042
     Dates: start: 20090514
  3. BENDAMUSTINE CEPHALON [Suspect]
     Indication: MANTLE CELL LYMPHOMA
     Dosage: 193 X'S 2 IV
     Route: 042
     Dates: start: 20090609
  4. BENDAMUSTINE CEPHALON [Suspect]
     Indication: MANTLE CELL LYMPHOMA
     Dosage: 193 X'S 2 IV
     Route: 042
     Dates: start: 20090610

REACTIONS (2)
  - RASH ERYTHEMATOUS [None]
  - RASH MACULO-PAPULAR [None]
